FAERS Safety Report 11658905 (Version 3)
Quarter: 2015Q4

REPORT INFORMATION
  Report Type: Report from Study
  Country: US (occurrence: US)
  Receive Date: 20151026
  Receipt Date: 20151028
  Transmission Date: 20160304
  Serious: Yes (Hospitalization, Other)
  Sender: FDA-Public Use
  Company Number: PHHO2015US017090

PATIENT
  Age: 63 Year
  Sex: Female
  Weight: 86.3 kg

DRUGS (2)
  1. DABRAFENIB [Suspect]
     Active Substance: DABRAFENIB
     Indication: GLIOBLASTOMA MULTIFORME
     Dosage: 150 MG, UNK
     Route: 048
     Dates: start: 20150820
  2. TRAMETINIB [Suspect]
     Active Substance: TRAMETINIB
     Indication: GLIOBLASTOMA MULTIFORME
     Dosage: 2 MG, QD
     Route: 048
     Dates: start: 20150820

REACTIONS (2)
  - Haemorrhage intracranial [Not Recovered/Not Resolved]
  - Seizure [Not Recovered/Not Resolved]

NARRATIVE: CASE EVENT DATE: 20150828
